FAERS Safety Report 5525079-5 (Version None)
Quarter: 2007Q4

REPORT INFORMATION
  Report Type: 
  Country: None (occurrence: None)
  Receive Date: 20071119
  Receipt Date: 20071119
  Transmission Date: 20080405
  Serious: Yes (Hospitalization, Other)
  Sender: FDA-Public Use
  Company Number: None

PATIENT
  Age: 55 Year
  Sex: Female
  Weight: 68.9467 kg

DRUGS (1)
  1. TRILEPTAL [Suspect]
     Indication: CONVULSION
     Dosage: 300 MG 4 TIMES DAILY PO
     Route: 048
     Dates: start: 20060510, end: 20071029

REACTIONS (11)
  - BLOOD PRESSURE FLUCTUATION [None]
  - BLOOD PRESSURE ORTHOSTATIC ABNORMAL [None]
  - BLOOD SODIUM DECREASED [None]
  - CHEST DISCOMFORT [None]
  - DEPRESSION [None]
  - DIZZINESS [None]
  - DYSPNOEA [None]
  - DYSSTASIA [None]
  - NAUSEA [None]
  - THYROID DISORDER [None]
  - TREMOR [None]
